FAERS Safety Report 10496860 (Version 1)
Quarter: 2014Q4

REPORT INFORMATION
  Report Type: Spontaneous
  Country: US (occurrence: US)
  Receive Date: 20141006
  Receipt Date: 20141006
  Transmission Date: 20150528
  Serious: No
  Sender: FDA-Public Use
  Company Number: US-BIOGENIDEC-2014BI101862

PATIENT
  Age: 40 Year
  Sex: Female

DRUGS (1)
  1. TYSABRI [Suspect]
     Active Substance: NATALIZUMAB
     Indication: MULTIPLE SCLEROSIS
     Route: 042
     Dates: start: 20100615

REACTIONS (11)
  - Chronic sinusitis [Unknown]
  - Groin pain [Unknown]
  - Urticaria [Unknown]
  - Malaise [Unknown]
  - Lymphadenopathy [Unknown]
  - Pruritus [Unknown]
  - Ear infection [Unknown]
  - Migraine [Unknown]
  - Urinary tract infection [Unknown]
  - Hypersensitivity [Not Recovered/Not Resolved]
  - Chills [Unknown]

NARRATIVE: CASE EVENT DATE: 20140924
